FAERS Safety Report 11851732 (Version 1)
Quarter: 2015Q4

REPORT INFORMATION
  Report Type: Spontaneous
  Country: JP (occurrence: JP)
  Receive Date: 20151218
  Receipt Date: 20151218
  Transmission Date: 20160305
  Serious: Yes (Other)
  Sender: FDA-Public Use
  Company Number: JP-JNJFOC-20151208956

PATIENT

DRUGS (5)
  1. INFLIXIMAB, RECOMBINANT [Suspect]
     Active Substance: INFLIXIMAB
     Indication: POUCHITIS
     Dosage: 0,2,6 WEEKS-INDUCTION PERIOD AND FOLLOWED BY STANDARD MAINTENANCE THERAPY EVERY 8 WEEKS
     Route: 042
     Dates: start: 201204
  2. INFLIXIMAB, RECOMBINANT [Suspect]
     Active Substance: INFLIXIMAB
     Indication: COLITIS ULCERATIVE
     Dosage: 0,2,6 WEEKS-INDUCTION PERIOD AND FOLLOWED BY STANDARD MAINTENANCE THERAPY EVERY 8 WEEKS
     Route: 042
     Dates: start: 201204
  3. CHLORPHENIRAMINE MALEATE. [Concomitant]
     Active Substance: CHLORPHENIRAMINE MALEATE
     Indication: PREMEDICATION
     Route: 065
  4. BIFIDOBACTERIUM BIFIDUM [Concomitant]
     Route: 065
  5. HYDROCORTISONE. [Concomitant]
     Active Substance: HYDROCORTISONE
     Indication: PREMEDICATION
     Route: 065

REACTIONS (2)
  - Drug ineffective [Unknown]
  - Ileostomy [Unknown]
